FAERS Safety Report 18088686 (Version 5)
Quarter: 2022Q3

REPORT INFORMATION
  Report Type: Spontaneous
  Country: US (occurrence: US)
  Receive Date: 20200729
  Receipt Date: 20220907
  Transmission Date: 20221027
  Serious: No
  Sender: FDA-Public Use
  Company Number: US-PFIZER INC-2020288203

PATIENT
  Sex: Female

DRUGS (64)
  1. DOCETAXEL [Suspect]
     Active Substance: DOCETAXEL
     Dosage: UNK
     Dates: start: 20200113, end: 20200330
  2. TAXOTERE [Suspect]
     Active Substance: DOCETAXEL
     Indication: Invasive ductal breast carcinoma
     Dosage: 150 MG, 1X/DAY
     Route: 042
     Dates: start: 20200113, end: 20200113
  3. TAXOTERE [Suspect]
     Active Substance: DOCETAXEL
     Dosage: 120 MG, 1X/DAY
     Route: 042
     Dates: start: 20200203, end: 20200203
  4. TAXOTERE [Suspect]
     Active Substance: DOCETAXEL
     Dosage: 90 MG
     Route: 042
     Dates: start: 20200330
  5. TAXOTERE [Suspect]
     Active Substance: DOCETAXEL
     Dosage: 100 MG
     Route: 042
     Dates: start: 20200303, end: 20200303
  6. PARAPLATIN [Concomitant]
     Active Substance: CARBOPLATIN
     Dosage: 900 MG, 1X/DAY
     Route: 042
     Dates: start: 20200113, end: 20200113
  7. PARAPLATIN [Concomitant]
     Active Substance: CARBOPLATIN
     Dosage: 750 MG, 1X/DAY
     Dates: start: 20200203, end: 20200203
  8. PARAPLATIN [Concomitant]
     Active Substance: CARBOPLATIN
     Dosage: 600 MG
     Route: 042
     Dates: start: 20200330
  9. PERJETA [Concomitant]
     Active Substance: PERTUZUMAB
     Dosage: 840 MG, 1X/DAY
     Route: 042
     Dates: start: 20200113, end: 20200113
  10. HERCEPTIN [Concomitant]
     Active Substance: TRASTUZUMAB
     Dosage: 720 MG, 1X/DAY
     Route: 042
     Dates: start: 20200113, end: 20200113
  11. HERCEPTIN [Concomitant]
     Active Substance: TRASTUZUMAB
     Dosage: 540 MG
     Route: 042
     Dates: start: 20200330
  12. ZYRTEC [Concomitant]
     Active Substance: CETIRIZINE HYDROCHLORIDE
     Dosage: 10 MG, 1X/DAY
     Route: 048
     Dates: start: 20191104
  13. SYMBICORT [Concomitant]
     Active Substance: BUDESONIDE\FORMOTEROL FUMARATE DIHYDRATE
     Dosage: 2 DF, 2X/DAY
     Route: 045
     Dates: start: 20190130
  14. FLONASE [Concomitant]
     Active Substance: FLUTICASONE PROPIONATE
     Dosage: 2 DF, DAILY
     Route: 045
     Dates: start: 20190130
  15. ALLEGRA [Concomitant]
     Active Substance: FEXOFENADINE HYDROCHLORIDE
     Dosage: 180 MG (TOTAL), DAILY
     Route: 048
     Dates: start: 20190130
  16. SODIUM CHLORIDE [Concomitant]
     Active Substance: SODIUM CHLORIDE
     Dosage: UNK, 1X/DAY (0.9 PERCENTAGE FLUSH 20 ML)
     Route: 042
     Dates: start: 20200113, end: 20200113
  17. SODIUM CHLORIDE [Concomitant]
     Active Substance: SODIUM CHLORIDE
     Dosage: 30 ML/HR, AS NEEDED
     Route: 042
     Dates: start: 20200113, end: 20200114
  18. SODIUM CHLORIDE [Concomitant]
     Active Substance: SODIUM CHLORIDE
     Dosage: 30 ML/HR, AS NEEDED
     Route: 042
     Dates: start: 20200203, end: 20200203
  19. SODIUM CHLORIDE [Concomitant]
     Active Substance: SODIUM CHLORIDE
     Dosage: 10 ML, AS NEEDED
     Dates: start: 20200326, end: 20200327
  20. SODIUM CHLORIDE [Concomitant]
     Active Substance: SODIUM CHLORIDE
     Dosage: 10 ML
     Dates: start: 20200330
  21. LUMASON [Concomitant]
     Active Substance: SULFUR HEXAFLUORIDE
     Dosage: UNK, AS NEEDED
     Dates: start: 20200113, end: 20200113
  22. ROXICODONE [Concomitant]
     Active Substance: OXYCODONE HYDROCHLORIDE
     Dosage: 5 MG, 1X/DAY
     Route: 048
     Dates: start: 20200113, end: 20200113
  23. ROXICODONE [Concomitant]
     Active Substance: OXYCODONE HYDROCHLORIDE
     Dosage: 5 MG, AS NEEDED (EVERY 6 HOURS)
     Route: 048
     Dates: start: 20200113, end: 20200504
  24. ALOXI [Concomitant]
     Active Substance: PALONOSETRON HYDROCHLORIDE
     Dosage: 0.25 MG, 1X/DAY
     Dates: start: 20200113, end: 20200113
  25. ALOXI [Concomitant]
     Active Substance: PALONOSETRON HYDROCHLORIDE
     Dosage: 0.25 MG/5ML
     Dates: start: 20200113, end: 20200114
  26. ALOXI [Concomitant]
     Active Substance: PALONOSETRON HYDROCHLORIDE
     Dosage: 0.25 MG, 1X/DAY
     Route: 042
     Dates: start: 20200203, end: 20200203
  27. ALOXI [Concomitant]
     Active Substance: PALONOSETRON HYDROCHLORIDE
     Dosage: 0.25 MG
     Route: 042
     Dates: start: 20200330
  28. ATIVAN [Concomitant]
     Active Substance: LORAZEPAM
     Dosage: 1 MG, 1X/DAY
     Route: 042
     Dates: start: 20200113, end: 20200113
  29. ATIVAN [Concomitant]
     Active Substance: LORAZEPAM
     Dosage: 2 MG/ML
     Dates: start: 20200113, end: 20200114
  30. ATIVAN [Concomitant]
     Active Substance: LORAZEPAM
     Dosage: 1 MG, 1X/DAY
     Dates: start: 20200203, end: 20200203
  31. ATIVAN [Concomitant]
     Active Substance: LORAZEPAM
     Dosage: 0.5 MG
     Route: 042
     Dates: start: 20200330
  32. DECADRON [Concomitant]
     Active Substance: DEXAMETHASONE
     Dosage: 20 MG, 1X/DAY
     Route: 042
     Dates: start: 20200113, end: 20200113
  33. DECADRON [Concomitant]
     Active Substance: DEXAMETHASONE
     Dosage: 10 MG/ML
     Dates: start: 20200113, end: 20200114
  34. DECADRON [Concomitant]
     Active Substance: DEXAMETHASONE
     Dosage: 20 MG, 1X/DAY
     Route: 042
     Dates: start: 20200203, end: 20200203
  35. DECADRON [Concomitant]
     Active Substance: DEXAMETHASONE
     Dosage: 20 MG
     Route: 042
     Dates: start: 20200330
  36. CLARITIN [Concomitant]
     Active Substance: LORATADINE
     Dosage: 10 MG, 1X/DAY
     Route: 048
     Dates: start: 20200113, end: 20200113
  37. CLARITIN [Concomitant]
     Active Substance: LORATADINE
     Dosage: 10 MG
     Dates: start: 20200113, end: 20200114
  38. CLARITIN [Concomitant]
     Active Substance: LORATADINE
     Dosage: 10 MG
     Route: 048
     Dates: start: 20200203
  39. CLARITIN [Concomitant]
     Active Substance: LORATADINE
     Dosage: 10 MG
     Route: 048
     Dates: start: 20200330
  40. PEPCID [Concomitant]
     Active Substance: FAMOTIDINE
     Dosage: 20 MG/2ML, AS NEEDED
     Route: 042
     Dates: start: 20200113, end: 20200113
  41. PEPCID [Concomitant]
     Active Substance: FAMOTIDINE
     Dosage: 20 MG/2ML
     Dates: start: 20200113, end: 20200114
  42. PEPCID [Concomitant]
     Active Substance: FAMOTIDINE
     Dosage: 20 MG, AS NEEDED
     Route: 042
     Dates: start: 20200203, end: 20200203
  43. CINVANTI [Concomitant]
     Active Substance: APREPITANT
     Dosage: 130 MG, 1X/DAY
     Route: 042
     Dates: start: 20200113, end: 20200113
  44. CINVANTI [Concomitant]
     Active Substance: APREPITANT
     Dosage: 130 MG/18ML
     Dates: start: 20200113, end: 20200114
  45. CINVANTI [Concomitant]
     Active Substance: APREPITANT
     Dosage: 130 MG, 1X/DAY
     Route: 042
     Dates: start: 20200203, end: 20200203
  46. CINVANTI [Concomitant]
     Active Substance: APREPITANT
     Dosage: 130 MG
     Route: 042
     Dates: start: 20200330
  47. NEULASTA [Concomitant]
     Active Substance: PEGFILGRASTIM
     Dosage: 6 MG, 1X/DAY
     Route: 058
     Dates: start: 20200113, end: 20200113
  48. NEULASTA [Concomitant]
     Active Substance: PEGFILGRASTIM
     Dosage: 6 MG/0.6ML
     Dates: start: 20200113, end: 20200114
  49. NEULASTA [Concomitant]
     Active Substance: PEGFILGRASTIM
     Dosage: 6 MG,1X/DAY
     Route: 058
     Dates: start: 20200203, end: 20200203
  50. LUPRON DEPOT [Concomitant]
     Active Substance: LEUPROLIDE ACETATE
     Dosage: 3.75 MG, 1X/DAY
     Route: 030
     Dates: start: 20200113, end: 20200113
  51. LUPRON DEPOT [Concomitant]
     Active Substance: LEUPROLIDE ACETATE
     Dosage: 3.75 MG
     Route: 030
     Dates: start: 20200309, end: 20200309
  52. HEPARIN LOCK FLUSH [Concomitant]
     Active Substance: HEPARIN SODIUM
     Dosage: 50 DF, AS NEEDED
     Dates: start: 20200113, end: 20200114
  53. HEPARIN LOCK FLUSH [Concomitant]
     Active Substance: HEPARIN SODIUM
     Dosage: 50 IU
     Dates: start: 20200330
  54. TYLENOL [Concomitant]
     Active Substance: ACETAMINOPHEN
     Dosage: 650 MG, 1X/DAY
     Route: 048
     Dates: start: 20200113, end: 20200113
  55. TYLENOL [Concomitant]
     Active Substance: ACETAMINOPHEN
     Dosage: 325 MG
     Dates: start: 20200113, end: 20200114
  56. TYLENOL [Concomitant]
     Active Substance: ACETAMINOPHEN
     Dosage: 325 MG
     Dates: start: 20200302, end: 20200302
  57. DECADRON [Concomitant]
     Active Substance: DEXAMETHASONE
     Dosage: 8 MG, 1X/DAY
     Dates: start: 20200113, end: 20200323
  58. EMLA [Concomitant]
     Active Substance: LIDOCAINE\PRILOCAINE
     Dosage: 1 DF, 1X/DAY
     Route: 061
     Dates: start: 20200113
  59. SOLU-CORTEF [Concomitant]
     Active Substance: HYDROCORTISONE SODIUM SUCCINATE
     Dosage: 100 MG, AS NEEDED
     Route: 042
     Dates: start: 20200203, end: 20200203
  60. BENADRYL [Concomitant]
     Active Substance: DIPHENHYDRAMINE HYDROCHLORIDE
     Dosage: 50 MG, AS NEEDED
     Route: 042
     Dates: start: 20200203, end: 20200203
  61. POLYTRIM [Concomitant]
     Active Substance: POLYMYXIN B SULFATE\TRIMETHOPRIM SULFATE
     Dosage: 2 DROP, 4X/DAY (1 DROP INTO BOTH EYES)
     Dates: start: 20200228
  62. CETIRIZINE HCL [Concomitant]
     Active Substance: CETIRIZINE HYDROCHLORIDE
     Dosage: 1 DF, DAILY
     Route: 048
     Dates: start: 20200303, end: 20200504
  63. VITAMIN C [Concomitant]
     Active Substance: ASCORBIC ACID
     Dosage: 500 MG, DAILY
     Route: 048
  64. VITAMIN D [Concomitant]
     Active Substance: VITAMIN D NOS
     Dosage: UNK, DAILY
     Route: 048

REACTIONS (2)
  - Lacrimation increased [Not Recovered/Not Resolved]
  - Dacryostenosis acquired [Not Recovered/Not Resolved]
